FAERS Safety Report 9137198 (Version 1)
Quarter: 2013Q1

REPORT INFORMATION
  Report Type: Spontaneous
  Country: JP (occurrence: JP)
  Receive Date: 20130304
  Receipt Date: 20130304
  Transmission Date: 20140127
  Serious: Yes (Other)
  Sender: FDA-Public Use
  Company Number: JP-ABBOTT-13P-087-1052185-00

PATIENT
  Age: 71 Year
  Sex: Female
  Weight: 60 kg

DRUGS (6)
  1. CLARITHROMYCIN [Suspect]
     Indication: MYCOBACTERIUM AVIUM COMPLEX INFECTION
  2. CLARITHROMYCIN [Suspect]
  3. RIFAMPICIN [Suspect]
     Indication: MYCOBACTERIUM AVIUM COMPLEX INFECTION
  4. RIFAMPICIN [Suspect]
  5. ETHAMBUTOL [Suspect]
     Indication: MYCOBACTERIUM AVIUM COMPLEX INFECTION
  6. ETHAMBUTOL [Suspect]

REACTIONS (4)
  - Atypical mycobacterial infection [Recovered/Resolved]
  - Nausea [Unknown]
  - Vomiting [Unknown]
  - Drug ineffective [Unknown]
